FAERS Safety Report 7553427-3 (Version None)
Quarter: 2011Q2

REPORT INFORMATION
  Report Type: 
  Country: None (occurrence: None)
  Receive Date: 20110617
  Receipt Date: 20110323
  Transmission Date: 20111010
  Serious: Yes (Hospitalization)
  Sender: FDA-Public Use
  Company Number: US-MYLANLABS-2011S1006160

PATIENT
  Age: 53 Year
  Sex: Female

DRUGS (5)
  1. BYSTOLIC [Concomitant]
     Indication: BLOOD PRESSURE INCREASED
     Route: 048
     Dates: start: 20100901
  2. SIMVASTATIN [Concomitant]
     Indication: BLOOD CHOLESTEROL INCREASED
     Route: 048
     Dates: start: 20100101
  3. METOPROLOL TARTRATE [Concomitant]
     Indication: BLOOD PRESSURE INCREASED
     Route: 048
     Dates: start: 20100101
  4. TOPIRAMATE [Suspect]
     Route: 048
     Dates: start: 20110101, end: 20110101
  5. TOPIRAMATE [Suspect]
     Indication: DEPRESSION
     Route: 048
     Dates: start: 20100401, end: 20110701

REACTIONS (4)
  - SUICIDE ATTEMPT [None]
  - SUICIDAL IDEATION [None]
  - DRUG EFFECT DECREASED [None]
  - DEPRESSION [None]
